FAERS Safety Report 10228418 (Version 1)
Quarter: 2014Q2

REPORT INFORMATION
  Report Type: Spontaneous
  Country: RS (occurrence: RS)
  Receive Date: 20140610
  Receipt Date: 20140610
  Transmission Date: 20141212
  Serious: Yes (Hospitalization)
  Sender: FDA-Public Use
  Company Number: RS-TEVA-486576ISR

PATIENT
  Age: 60 Year
  Sex: Female
  Weight: 60 kg

DRUGS (1)
  1. CARBOPLATIN TEVA [Suspect]
     Indication: OVARIAN CANCER
     Route: 042
     Dates: start: 20140516, end: 20140516

REACTIONS (3)
  - Chest discomfort [Recovered/Resolved]
  - Dyspnoea [Recovered/Resolved]
  - Sinus tachycardia [Not Recovered/Not Resolved]
